FAERS Safety Report 6676648-0 (Version None)
Quarter: 2010Q2

REPORT INFORMATION
  Report Type: 
  Country: None (occurrence: None)
  Receive Date: 20100412
  Receipt Date: 20100401
  Transmission Date: 20101027
  Serious: Yes (Hospitalization, Other)
  Sender: FDA-Public Use
  Company Number: PHHY2010IE15112

PATIENT
  Sex: Male

DRUGS (7)
  1. CLOZARIL [Suspect]
     Indication: SCHIZOPHRENIA
     Dosage: 250 MG, UNK
     Route: 048
     Dates: start: 20010226, end: 20100309
  2. CLOZARIL [Suspect]
     Dosage: 300 MG, UNK
  3. VALPROAT [Concomitant]
  4. EPILIM CHRONO [Concomitant]
     Indication: CONVULSION
     Dosage: 800 MG
     Route: 048
     Dates: start: 20030101
  5. LIPITOR [Concomitant]
     Indication: HYPERLIPIDAEMIA
     Dosage: 10 MG
     Route: 048
  6. TRITACE [Concomitant]
     Indication: HYPERTENSION
     Dosage: 7.5 MG
     Route: 048
  7. ASPIRIN [Concomitant]
     Indication: CARDIOVASCULAR DISORDER
     Dosage: 75 MG
     Route: 048

REACTIONS (8)
  - ACTIVATED PARTIAL THROMBOPLASTIN TIME PROLONGED [None]
  - CEREBROVASCULAR ACCIDENT [None]
  - CIRCULATORY COLLAPSE [None]
  - CONVULSION [None]
  - GENERAL PHYSICAL HEALTH DETERIORATION [None]
  - PSYCHOTIC DISORDER [None]
  - RED BLOOD CELL SEDIMENTATION RATE INCREASED [None]
  - THROMBOCYTOPENIA [None]
